FAERS Safety Report 8346333-8 (Version None)
Quarter: 2012Q2

REPORT INFORMATION
  Report Type: 
  Country: None (occurrence: None)
  Receive Date: 20120509
  Receipt Date: 20120501
  Transmission Date: 20120825
  Serious: Yes (Death, Hospitalization, Other)
  Sender: FDA-Public Use
  Company Number: US-PFIZER INC-2012062972

PATIENT
  Sex: Female

DRUGS (3)
  1. REVATIO [Suspect]
     Indication: PULMONARY HYPERTENSION
     Dosage: 20 MG, 3X/DAY
     Route: 048
     Dates: start: 20110824, end: 20111214
  2. MILRINONE [Suspect]
     Indication: CARDIAC OUTPUT
     Dosage: UNK
     Route: 042
     Dates: start: 20111201, end: 20111201
  3. FLOLAN [Suspect]
     Indication: PULMONARY VASCULAR DISORDER
     Dosage: UNK
     Dates: start: 20111201, end: 20111201

REACTIONS (12)
  - HYPOXIA [None]
  - CARDIOPULMONARY FAILURE [None]
  - RENAL FAILURE ACUTE [None]
  - SEPTIC SHOCK [None]
  - DRUG INTOLERANCE [None]
  - CARDIOGENIC SHOCK [None]
  - HYPOTENSION [None]
  - HAEMODYNAMIC INSTABILITY [None]
  - RIGHT VENTRICULAR FAILURE [None]
  - DYSPNOEA [None]
  - PULMONARY HYPERTENSION [None]
  - LEUKAEMOID REACTION [None]
